FAERS Safety Report 6489732-1 (Version None)
Quarter: 2009Q4

REPORT INFORMATION
  Report Type: 
  Country: None (occurrence: None)
  Receive Date: 20091210
  Receipt Date: 20091207
  Transmission Date: 20100525
  Serious: Yes (Hospitalization)
  Sender: FDA-Public Use
  Company Number: US-BRISTOL-MYERS SQUIBB COMPANY-14872022

PATIENT
  Age: 53 Year
  Sex: Male
  Weight: 85 kg

DRUGS (3)
  1. CETUXIMAB [Suspect]
     Indication: HEAD AND NECK CANCER
     Dosage: 500MG WEEKLY FROM 30NOV09
     Route: 042
     Dates: start: 20091116
  2. CISPLATIN [Suspect]
     Indication: HEAD AND NECK CANCER
     Dosage: 2 DOSES 150MG Q21D FROM 30NOV09
     Route: 042
     Dates: start: 20091102
  3. RADIATION THERAPY [Suspect]
     Indication: HEAD AND NECK CANCER
     Dates: start: 20091102

REACTIONS (7)
  - DEHYDRATION [None]
  - FEBRILE NEUTROPENIA [None]
  - HYPOPHAGIA [None]
  - NAUSEA [None]
  - ORAL CANDIDIASIS [None]
  - PAIN [None]
  - VOMITING [None]
